FAERS Safety Report 24877568 (Version 1)
Quarter: 2025Q1

REPORT INFORMATION
  Report Type: Spontaneous
  Country: CA (occurrence: CA)
  Receive Date: 20250123
  Receipt Date: 20250123
  Transmission Date: 20250408
  Serious: Yes (Hospitalization)
  Sender: CSL BEHRING
  Company Number: CA-BEH-2025192446

PATIENT
  Age: 62 Year
  Sex: Male

DRUGS (5)
  1. HUMAN IMMUNOGLOBULIN G [Suspect]
     Active Substance: HUMAN IMMUNOGLOBULIN G
     Indication: Product used for unknown indication
     Route: 042
  2. HUMAN IMMUNOGLOBULIN G [Suspect]
     Active Substance: HUMAN IMMUNOGLOBULIN G
     Route: 058
  3. HIZENTRA [Suspect]
     Active Substance: HUMAN IMMUNOGLOBULIN G
     Indication: Secondary immunodeficiency
     Route: 058
  4. HIZENTRA [Suspect]
     Active Substance: HUMAN IMMUNOGLOBULIN G
     Dosage: 10 G, QW
     Route: 058
  5. IMMUNE GLOBULIN [Concomitant]
     Indication: Product used for unknown indication

REACTIONS (11)
  - Jaundice [Unknown]
  - Asthenia [Unknown]
  - Chest discomfort [Unknown]
  - Chromaturia [Unknown]
  - Dyspnoea [Unknown]
  - Fatigue [Unknown]
  - Hyperhidrosis [Unknown]
  - Malaise [Unknown]
  - Rash [Unknown]
  - Anaemia [Unknown]
  - Off label use [Unknown]
